FAERS Safety Report 7410970-5 (Version None)
Quarter: 2011Q2

REPORT INFORMATION
  Report Type: 
  Country: None (occurrence: None)
  Receive Date: 20110405
  Receipt Date: 20110324
  Transmission Date: 20111010
  Serious: Yes (Hospitalization)
  Sender: FDA-Public Use
  Company Number: CIP11000784

PATIENT
  Age: 80 Year
  Sex: Female

DRUGS (5)
  1. ENDOTELON /00811401/ (HERBAL EXTRATC NOS, VITIS VINIFERA) [Concomitant]
  2. SOLUPRED /00016201/ [Concomitant]
  3. FURADANTIN [Suspect]
     Indication: CYSTITIS
     Dosage: 150 MG ONCE A DAY, ORAL
     Route: 048
     Dates: start: 20110131, end: 20110204
  4. ACTONEL [Concomitant]
  5. CORTICOSTEROIDS [Concomitant]

REACTIONS (4)
  - VASCULAR PURPURA [None]
  - PYREXIA [None]
  - GAMMA-GLUTAMYLTRANSFERASE INCREASED [None]
  - ALANINE AMINOTRANSFERASE INCREASED [None]
